FAERS Safety Report 6699694-X (Version None)
Quarter: 2010Q2

REPORT INFORMATION
  Report Type: 
  Country: None (occurrence: None)
  Receive Date: 20100428
  Receipt Date: 20100420
  Transmission Date: 20101027
  Serious: No
  Sender: FDA-Public Use
  Company Number: PR-BIOGENIDEC-2010BI013097

PATIENT
  Age: 57 Year
  Sex: Female

DRUGS (5)
  1. AVONEX [Suspect]
     Indication: MULTIPLE SCLEROSIS
     Route: 030
     Dates: start: 19980101, end: 20030101
  2. AVONEX [Suspect]
     Route: 030
     Dates: start: 20030101
  3. KLONOPIN [Concomitant]
     Indication: DEPRESSION
  4. VALIUM [Concomitant]
     Indication: DEPRESSION
  5. ZYRTEC [Concomitant]
     Indication: SEASONAL ALLERGY

REACTIONS (12)
  - ABDOMINAL DISTENSION [None]
  - ANAESTHETIC COMPLICATION [None]
  - DEPRESSION [None]
  - FALL [None]
  - HALLUCINATION [None]
  - HALLUCINATION, AUDITORY [None]
  - HEAD INJURY [None]
  - HEADACHE [None]
  - INJURY [None]
  - MUSCULAR WEAKNESS [None]
  - SCREAMING [None]
  - SKIN LACERATION [None]
